FAERS Safety Report 26194314 (Version 2)
Quarter: 2025Q4

REPORT INFORMATION
  Report Type: Spontaneous
  Country: AR (occurrence: AR)
  Receive Date: 20251224
  Receipt Date: 20251229
  Transmission Date: 20260118
  Serious: Yes (Other)
  Sender: MYLAN
  Company Number: AR-MYLANLABS-2025M1109023

PATIENT
  Age: 21 Year
  Sex: Male

DRUGS (7)
  1. CLOZAPINE [Suspect]
     Active Substance: CLOZAPINE
     Indication: Product used for unknown indication
     Dosage: UNK
  2. CLOZAPINE [Suspect]
     Active Substance: CLOZAPINE
     Dosage: 75 MILLIGRAM
  3. CLOZAPINE [Suspect]
     Active Substance: CLOZAPINE
     Dosage: 50 MILLIGRAM
  4. QUETIAPINE [Suspect]
     Active Substance: QUETIAPINE
     Indication: Product used for unknown indication
     Dosage: 500 MILLIGRAM, QD
  5. TOPIRAMATE [Concomitant]
     Active Substance: TOPIRAMATE
     Dosage: 400 MILLIGRAM, QD
  6. CARBAMAZEPINE [Concomitant]
     Active Substance: CARBAMAZEPINE
     Dosage: 1600 MILLIGRAM, QD
  7. LEVOMEPROMAZINE [Concomitant]
     Active Substance: LEVOMEPROMAZINE
     Dosage: 200 MILLIGRAM, QD

REACTIONS (3)
  - Leukopenia [Recovered/Resolved]
  - Neutropenia [Recovered/Resolved]
  - Contraindicated product administered [Unknown]

NARRATIVE: CASE EVENT DATE: 20251217
